FAERS Safety Report 12437407 (Version 1)
Quarter: 2016Q2

REPORT INFORMATION
  Report Type: Report from Study
  Country: BR (occurrence: BR)
  Receive Date: 20160606
  Receipt Date: 20160606
  Transmission Date: 20160815
  Serious: Yes (Other)
  Sender: FDA-Public Use
  Company Number: PHHY2016BR076383

PATIENT
  Sex: Female
  Weight: 70 kg

DRUGS (5)
  1. ACLASTA [Suspect]
     Active Substance: ZOLEDRONIC ACID
     Indication: PRODUCT USED FOR UNKNOWN INDICATION
     Dosage: 5 MG, Q12MO
     Route: 042
     Dates: start: 2014
  2. MULTILEX [Concomitant]
     Indication: SUPPLEMENTATION THERAPY
     Dosage: 1 DF, UNK
     Route: 048
  3. REUQUINOL [Concomitant]
     Active Substance: HYDROXYCHLOROQUINE SULFATE
     Indication: RHEUMATIC DISORDER
     Dosage: 1 DF, BID
     Route: 048
  4. BENERVA [Concomitant]
     Active Substance: THIAMINE
     Indication: TREMOR
  5. BENERVA [Concomitant]
     Active Substance: THIAMINE
     Indication: ASTHENIA
     Dosage: 1 DF, QD (1 MONTH AGO)
     Route: 048

REACTIONS (5)
  - Cataract [Unknown]
  - Arthralgia [Unknown]
  - Osteopenia [Unknown]
  - Osteoporosis [Unknown]
  - Eye allergy [Unknown]
